FAERS Safety Report 25063523 (Version 1)
Quarter: 2025Q1

REPORT INFORMATION
  Report Type: Spontaneous
  Country: TN (occurrence: TN)
  Receive Date: 20250311
  Receipt Date: 20250311
  Transmission Date: 20250408
  Serious: Yes (Death, Other)
  Sender: PFIZER
  Company Number: TN-PFIZER INC-PV202500028716

PATIENT
  Age: 34 Year

DRUGS (1)
  1. PALBOCICLIB [Suspect]
     Active Substance: PALBOCICLIB
     Indication: Breast cancer metastatic

REACTIONS (3)
  - Breast cancer metastatic [Fatal]
  - Malignant neoplasm progression [Fatal]
  - Haematotoxicity [Unknown]
